FAERS Safety Report 9978635 (Version 1)
Quarter: 2014Q1

REPORT INFORMATION
  Report Type: Report from Study
  Country: US (occurrence: US)
  Receive Date: 20140306
  Receipt Date: 20140306
  Transmission Date: 20141002
  Serious: No
  Sender: FDA-Public Use
  Company Number: US-ABBVIE-13P-163-1170102-00

PATIENT
  Sex: Female
  Weight: 79 kg

DRUGS (7)
  1. HUMIRA [Suspect]
     Indication: PSORIASIS
     Dates: start: 20131108, end: 20131108
  2. METHOTREXATE [Suspect]
     Indication: PSORIASIS
  3. MUPRIOCIN [Concomitant]
     Indication: PRODUCT USED FOR UNKNOWN INDICATION
  4. TRIAMCINOLONE [Concomitant]
     Indication: PSORIASIS
  5. VITAMIN E NOS [Concomitant]
     Indication: VITAMIN SUPPLEMENTATION
  6. GLUCOSAMINE [Concomitant]
     Indication: VITAMIN SUPPLEMENTATION
  7. FOLIC ACID [Concomitant]
     Indication: VITAMIN SUPPLEMENTATION

REACTIONS (1)
  - Nausea [Not Recovered/Not Resolved]
